FAERS Safety Report 14577279 (Version 1)
Quarter: 2018Q1

REPORT INFORMATION
  Report Type: Spontaneous
  Country: US (occurrence: US)
  Receive Date: 20180226
  Receipt Date: 20180226
  Transmission Date: 20180509
  Serious: Yes (Hospitalization, Disabling)
  Sender: FDA-Public Use
  Company Number: None

PATIENT
  Age: 60 Year
  Sex: Female
  Weight: 63 kg

DRUGS (2)
  1. BONIVA [Suspect]
     Active Substance: IBANDRONATE SODIUM
     Indication: OSTEOPENIA
     Dosage: ?          OTHER FREQUENCY:MONTHLY INFUSIONS;OTHER ROUTE:INFUSION?
     Dates: start: 20030201, end: 20150219
  2. ACTONEL [Suspect]
     Active Substance: RISEDRONATE SODIUM
     Indication: OSTEOPENIA
     Dosage: ?          OTHER FREQUENCY:WEEKLY I THINK;?
     Route: 048
     Dates: start: 19980219, end: 20030215

REACTIONS (3)
  - Joint dislocation [None]
  - Fall [None]
  - Femur fracture [None]

NARRATIVE: CASE EVENT DATE: 20150219
